FAERS Safety Report 4448741-4 (Version None)
Quarter: 2004Q3

REPORT INFORMATION
  Report Type: 
  Country: None (occurrence: None)
  Receive Date: 20040909
  Receipt Date: 20040827
  Transmission Date: 20050211
  Serious: Yes (Hospitalization)
  Sender: FDA-Public Use
  Company Number: 2004-BP-07422AU

PATIENT

DRUGS (1)
  1. MICARDIS [Suspect]
     Dosage: PO
     Route: 048

REACTIONS (1)
  - SEPSIS [None]
